FAERS Safety Report 15076614 (Version 2)
Quarter: 2018Q3

REPORT INFORMATION
  Report Type: Spontaneous
  Country: FR (occurrence: FR)
  Receive Date: 20180627
  Receipt Date: 20180717
  Transmission Date: 20181010
  Serious: Yes (Other)
  Sender: FDA-Public Use
  Company Number: FR-PFIZER INC-2018244185

PATIENT
  Age: 65 Year
  Sex: Male

DRUGS (9)
  1. ATRACURIUM BESILATE [Suspect]
     Active Substance: ATRACURIUM BESYLATE
     Indication: ANAESTHESIA
     Dosage: 50 MG, CYCLIC
     Route: 042
     Dates: start: 20180613, end: 20180613
  2. XARELTO [Concomitant]
     Active Substance: RIVAROXABAN
     Dosage: 20 MG, 1X/DAY (0?0?1)
  3. ATENOLOL. [Concomitant]
     Active Substance: ATENOLOL
     Dosage: 50 MG, 1X/DAY (1?0?0)
  4. SPIRONOLACTONE. [Concomitant]
     Active Substance: SPIRONOLACTONE
     Dosage: 25 MG, 2X/DAY (1?0?1)
  5. PROPOFOL B. BRAUN [Suspect]
     Active Substance: PROPOFOL
     Indication: ANAESTHESIA
     Dosage: 200 MG, SINGLE
     Route: 042
     Dates: start: 20180613, end: 20180613
  6. SUFENTANIL MYLAN [Suspect]
     Active Substance: SUFENTANIL
     Indication: ANAESTHESIA
     Dosage: 20 UG, SINGLE
     Route: 042
     Dates: start: 20180613, end: 20180613
  7. SERESTA [Concomitant]
     Active Substance: OXAZEPAM
     Dosage: 10 MG, 1X/DAY (0?0?1)
  8. FLECAINE [Concomitant]
     Active Substance: FLECAINIDE
     Dosage: 100 MG, 2X/DAY (1?0?1)
  9. ZOPICLONE [Concomitant]
     Active Substance: ZOPICLONE
     Dosage: 1 TABLET IN THE EVENING

REACTIONS (7)
  - Anaphylactic shock [Unknown]
  - Localised oedema [Unknown]
  - Blood pressure systolic decreased [Unknown]
  - Carbon dioxide decreased [Unknown]
  - Bronchospasm [Unknown]
  - Hypersensitivity [Unknown]
  - Eyelid oedema [Unknown]

NARRATIVE: CASE EVENT DATE: 20180613
